FAERS Safety Report 4608679-6 (Version None)
Quarter: 2005Q1

REPORT INFORMATION
  Report Type: 
  Country: None (occurrence: None)
  Receive Date: 20050315
  Receipt Date: 20030314
  Transmission Date: 20050727
  Serious: Yes (Hospitalization)
  Sender: FDA-Public Use
  Company Number: US-ROCHE-333842

PATIENT
  Age: 62 Year
  Sex: Male
  Weight: 72.6 kg

DRUGS (20)
  1. ENFUVIRTIDE [Suspect]
     Indication: HIV INFECTION
     Route: 058
     Dates: start: 20021125, end: 20030311
  2. ENFUVIRTIDE [Suspect]
     Route: 058
     Dates: start: 20030409
  3. ATAZANAVIR [Suspect]
     Indication: HIV INFECTION
     Route: 065
     Dates: start: 20021125, end: 20030310
  4. ATAZANAVIR [Suspect]
     Route: 065
     Dates: start: 20030409
  5. SIMVASTATIN [Suspect]
     Route: 065
     Dates: start: 20021010, end: 20030311
  6. DELAVIRDINE [Concomitant]
     Indication: HIV INFECTION
     Dates: start: 20030214
  7. VIDEX EC [Concomitant]
     Indication: HIV INFECTION
     Dosage: TAKEN EVERY MORNING
     Dates: start: 20021216
  8. FLUCONAZOLE [Concomitant]
  9. NEURONTIN [Concomitant]
     Dosage: TAKEN EVERY NIGHT.
  10. TRAZODONE HCL [Concomitant]
  11. LOPERAMIDE HCL [Concomitant]
     Dosage: TAKEN AS REQUIRED.
  12. METOPROLOL [Concomitant]
  13. CLONAZEPAM [Concomitant]
  14. ZITHROMAX [Concomitant]
     Dosage: TAKEN EVERY SUNDAY.
  15. ATOVAQUONE [Concomitant]
  16. MIACALCIN SPRAY [Concomitant]
     Dosage: ONE SPRAY IN EACH NOSTRIL DAILY.
     Route: 045
  17. MULTI-VITAMIN [Concomitant]
     Dosage: MULTIVITAMIN CONSISTED OF CALCIUM, MAGNESIUM AND COPPER
     Dates: start: 20010615, end: 20030311
  18. ILEX [Concomitant]
     Dosage: DRUG IS ACTUALLY ILEX-15
     Dates: start: 20010615, end: 20030311
  19. QUERCETIN [Concomitant]
     Dates: start: 20010615, end: 20030311
  20. VITAMIN C [Concomitant]
     Dates: start: 20010615, end: 20030311

REACTIONS (3)
  - HEPATITIS [None]
  - HYPOVOLAEMIA [None]
  - RHABDOMYOLYSIS [None]
